FAERS Safety Report 9073635 (Version 1)
Quarter: 2013Q1

REPORT INFORMATION
  Report Type: Report from Study
  Country: TR (occurrence: TR)
  Receive Date: 20130216
  Receipt Date: 20130216
  Transmission Date: 20140127
  Serious: Yes (Other)
  Sender: FDA-Public Use
  Company Number: TR-US-EMD SERONO, INC.-7193294

PATIENT
  Sex: Female
  Weight: 58 kg

DRUGS (4)
  1. REBIF [Suspect]
     Indication: MULTIPLE SCLEROSIS
     Route: 058
     Dates: start: 201210
  2. NEURONTIN [Suspect]
     Indication: CONVULSION
     Route: 048
     Dates: start: 201210
  3. AMPYRA [Suspect]
     Indication: GAIT DISTURBANCE
     Route: 048
     Dates: start: 201210
  4. CALCINET [Concomitant]
     Indication: OSTEOPOROSIS
     Route: 048
     Dates: start: 2012

REACTIONS (1)
  - Ear haemorrhage [Recovered/Resolved]
